FAERS Safety Report 8362581-5 (Version None)
Quarter: 2012Q2

REPORT INFORMATION
  Report Type: 
  Country: None (occurrence: None)
  Receive Date: 20120514
  Receipt Date: 20120503
  Transmission Date: 20120825
  Serious: Yes (Other)
  Sender: FDA-Public Use
  Company Number: AUR-APL-2012-01988

PATIENT
  Age: 16 Year
  Sex: Female
  Weight: 50 kg

DRUGS (8)
  1. METHYLPREDNISOLONE [Suspect]
     Indication: PRODUCT USED FOR UNKNOWN INDICATION
     Dosage: INTRAVENOUS
     Route: 042
  2. MIDAZOLAM HCL [Suspect]
     Indication: STATUS EPILEPTICUS
     Dosage: INTRAVENOUS
     Route: 042
  3. CLOBAZAM [Suspect]
     Indication: TONIC CONVULSION
  4. TOPIRAMATE [Suspect]
     Indication: STATUS EPILEPTICUS
     Dosage: ORAL
     Route: 048
  5. CLONAZEPAM [Suspect]
     Indication: STATUS EPILEPTICUS
     Dosage: INTRAVENOUS
     Route: 042
  6. VALPROATE SODIUM [Suspect]
     Indication: STATUS EPILEPTICUS
     Dosage: UNKNOWN
  7. LEVETIRACETAM [Suspect]
     Indication: TONIC CONVULSION
  8. LEVETIRACETAM [Suspect]
     Indication: STATUS EPILEPTICUS
     Dosage: INTRAVENOUS
     Route: 042

REACTIONS (2)
  - STATUS EPILEPTICUS [None]
  - DRUG INEFFECTIVE [None]
